FAERS Safety Report 4371909-2 (Version None)
Quarter: 2004Q2

REPORT INFORMATION
  Report Type: 
  Country: None (occurrence: None)
  Receive Date: 20040602
  Receipt Date: 20040518
  Transmission Date: 20050107
  Serious: Yes (Life-Threatening)
  Sender: FDA-Public Use
  Company Number: 04H-163-0261628-00

PATIENT
  Age: 53 Year
  Sex: Female

DRUGS (1)
  1. HEPARIN SODIUM [Suspect]
     Indication: ANTICOAGULANT THERAPY
     Dosage: SEE IMAGE
     Route: 040

REACTIONS (4)
  - ANTIBODY TEST POSITIVE [None]
  - BRADYCARDIA [None]
  - CARDIAC ARREST [None]
  - HEPARIN-INDUCED THROMBOCYTOPENIA [None]
